FAERS Safety Report 25751489 (Version 1)
Quarter: 2025Q3

REPORT INFORMATION
  Report Type: Spontaneous
  Country: US (occurrence: US)
  Receive Date: 20250902
  Receipt Date: 20250902
  Transmission Date: 20251021
  Serious: Yes (Hospitalization, Other)
  Sender: NOVO NORDISK
  Company Number: US-NOVOPROD-1507084

PATIENT
  Age: 61 Year
  Sex: Female

DRUGS (4)
  1. WEGOVY [Suspect]
     Active Substance: SEMAGLUTIDE
     Indication: Weight control
     Route: 058
     Dates: start: 202208
  2. WEGOVY [Suspect]
     Active Substance: SEMAGLUTIDE
     Route: 058
     Dates: start: 202505
  3. WELLBUTRIN [Concomitant]
     Active Substance: BUPROPION HYDROCHLORIDE
     Indication: Product used for unknown indication
     Route: 048
  4. QULIPTA [Concomitant]
     Active Substance: ATOGEPANT
     Indication: Migraine
     Route: 048

REACTIONS (4)
  - Spinal fusion surgery [Unknown]
  - Renal injury [Unknown]
  - Dehydration [Unknown]
  - Inappropriate schedule of product administration [Unknown]

NARRATIVE: CASE EVENT DATE: 20250403
